FAERS Safety Report 6838535-4 (Version None)
Quarter: 2010Q3

REPORT INFORMATION
  Report Type: 
  Country: None (occurrence: None)
  Receive Date: 20100713
  Receipt Date: 20070615
  Transmission Date: 20110219
  Serious: No
  Sender: FDA-Public Use
  Company Number: US-PFIZER INC-2007050288

PATIENT
  Sex: Female
  Weight: 54.5 kg

DRUGS (6)
  1. CHANTIX [Suspect]
     Indication: SMOKING CESSATION THERAPY
     Dates: start: 20070603
  2. PLAVIX [Concomitant]
  3. METRONIDAZOLE [Concomitant]
  4. LIPITOR [Concomitant]
  5. BENACORT [Concomitant]
  6. VICODIN [Concomitant]

REACTIONS (2)
  - MALAISE [None]
  - NAUSEA [None]
